FAERS Safety Report 12747501 (Version 3)
Quarter: 2020Q2

REPORT INFORMATION
  Report Type: Spontaneous
  Country: US (occurrence: US)
  Receive Date: 20160915
  Receipt Date: 20200520
  Transmission Date: 20200713
  Serious: No
  Sender: FDA-Public Use
  Company Number: US-JAZZ-2016-US-009681

PATIENT
  Sex: Female

DRUGS (9)
  1. CHERATUSSIN AC [Concomitant]
     Active Substance: CODEINE PHOSPHATE\GUAIFENESIN
  2. NUVIGIL [Concomitant]
     Active Substance: ARMODAFINIL
  3. PERCOCET [Concomitant]
     Active Substance: ACETAMINOPHEN\OXYCODONE HYDROCHLORIDE
  4. MOBIC [Concomitant]
     Active Substance: MELOXICAM
  5. XYREM [Suspect]
     Active Substance: SODIUM OXYBATE
     Indication: CATAPLEXY
  6. XYREM [Suspect]
     Active Substance: SODIUM OXYBATE
     Indication: SLEEP DISORDER
     Dosage: 4.5 G, BID
     Route: 048
     Dates: start: 200809
  7. XYREM [Suspect]
     Active Substance: SODIUM OXYBATE
     Indication: NARCOLEPSY
  8. ALLEGRA-D [FEXOFENADINE;PSEUDOEPHEDRINE HYDROCHLORIDE] [Concomitant]
  9. APRI [Concomitant]
     Active Substance: DESOGESTREL\ETHINYL ESTRADIOL

REACTIONS (2)
  - Asthma exercise induced [Not Recovered/Not Resolved]
  - Depression [Unknown]
